FAERS Safety Report 5165270-3 (Version None)
Quarter: 2006Q4

REPORT INFORMATION
  Report Type: 
  Country: None (occurrence: None)
  Receive Date: 20061124
  Receipt Date: 20061109
  Transmission Date: 20070319
  Serious: Yes (Other)
  Sender: FDA-Public Use
  Company Number: 2006140859

PATIENT
  Age: 44 Year

DRUGS (1)
  1. VIAGRA [Suspect]
     Indication: ERECTILE DYSFUNCTION

REACTIONS (8)
  - ANEURYSM [None]
  - BLOOD GLUCOSE INCREASED [None]
  - DIPLOPIA [None]
  - EYELID PTOSIS [None]
  - GLYCOSYLATED HAEMOGLOBIN INCREASED [None]
  - IIIRD NERVE PARALYSIS [None]
  - MACULOPATHY [None]
  - STRABISMUS [None]
